FAERS Safety Report 6221201-6 (Version None)
Quarter: 2009Q2

REPORT INFORMATION
  Report Type: 
  Country: None (occurrence: None)
  Receive Date: 20090610
  Receipt Date: 20090527
  Transmission Date: 20091009
  Serious: Yes (Hospitalization)
  Sender: FDA-Public Use
  Company Number: BR-ELI_LILLY_AND_COMPANY-BR200905005568

PATIENT
  Sex: Male

DRUGS (7)
  1. ZYPREXA [Suspect]
     Dosage: 5 MG, UNKNOWN
     Route: 065
     Dates: start: 20040101, end: 20060101
  2. ZYPREXA [Suspect]
     Dosage: 20 MG, UNKNOWN
     Route: 065
     Dates: start: 20060101, end: 20080101
  3. ZYPREXA [Suspect]
     Dosage: UNK, UNKNOWN
     Route: 065
     Dates: start: 20080101
  4. HALOPERIDOL DECANOATE [Concomitant]
     Dosage: 10 MG, UNKNOWN
     Route: 065
  5. HALOPERIDOL DECANOATE [Concomitant]
     Dosage: 5 MG, UNKNOWN
     Route: 065
  6. HALOPERIDOL DECANOATE [Concomitant]
     Dosage: 20 MG, UNKNOWN
     Route: 065
  7. CAPTOPRIL [Concomitant]
     Indication: HYPERTENSION
     Dosage: 5 MG, UNKNOWN
     Route: 065

REACTIONS (10)
  - GYNAECOMASTIA [None]
  - HALLUCINATION, VISUAL [None]
  - HYPERSENSITIVITY [None]
  - NIGHTMARE [None]
  - PARAESTHESIA [None]
  - PERSECUTORY DELUSION [None]
  - PRURITUS GENITAL [None]
  - THINKING ABNORMAL [None]
  - WEIGHT INCREASED [None]
  - WRONG TECHNIQUE IN DRUG USAGE PROCESS [None]
